FAERS Safety Report 9819597 (Version 2)
Quarter: 2014Q1

REPORT INFORMATION
  Report Type: Spontaneous
  Country: US (occurrence: None)
  Receive Date: 20140113
  Receipt Date: 20140122
  Transmission Date: 20141002
  Serious: Yes (Other)
  Sender: FDA-Public Use
  Company Number: NXG-13-020

PATIENT
  Sex: Female

DRUGS (1)
  1. ASCOMP W/CODEINE [Suspect]
     Indication: MIGRAINE
     Dosage: 1 CAPSULE UP TO 8/DAY

REACTIONS (2)
  - Product physical issue [None]
  - Product quality issue [None]
